FAERS Safety Report 26061119 (Version 1)
Quarter: 2025Q4

REPORT INFORMATION
  Report Type: Spontaneous
  Country: CA (occurrence: CA)
  Receive Date: 20251118
  Receipt Date: 20251118
  Transmission Date: 20260118
  Serious: Yes (Other)
  Sender: SANDOZ
  Company Number: CA-SANDOZ-SDZ2025CA085143

PATIENT
  Age: 70 Year
  Sex: Male

DRUGS (2)
  1. SIROLIMUS [Suspect]
     Active Substance: SIROLIMUS
     Indication: Product used for unknown indication
     Dosage: UNK
     Route: 065
  2. TACROLIMUS [Suspect]
     Active Substance: TACROLIMUS
     Indication: Product used for unknown indication
     Dosage: 3 MG, QD, TAPERING OFF OF IT
     Route: 065

REACTIONS (2)
  - Transplant [Unknown]
  - Renal disorder [Unknown]

NARRATIVE: CASE EVENT DATE: 20250908
